FAERS Safety Report 16431678 (Version 2)
Quarter: 2019Q2

REPORT INFORMATION
  Report Type: Spontaneous
  Country: US (occurrence: US)
  Receive Date: 20190614
  Receipt Date: 20190626
  Transmission Date: 20190711
  Serious: No
  Sender: FDA-Public Use
  Company Number: US-KRAMERLABS-2019-US-003506

PATIENT
  Age: 71 Year
  Sex: Male
  Weight: 68.04 kg

DRUGS (1)
  1. NIZORAL A-D [Suspect]
     Active Substance: KETOCONAZOLE
     Indication: SKIN EXFOLIATION
     Dosage: 1/2 CAPFUL TWICE DAILY 1/2 CAPFUL  TWICE DAILY
     Route: 065

REACTIONS (2)
  - Skin disorder [Not Recovered/Not Resolved]
  - Drug ineffective [Unknown]
